FAERS Safety Report 4396709-9 (Version None)
Quarter: 2004Q3

REPORT INFORMATION
  Report Type: 
  Country: None (occurrence: None)
  Receive Date: 20040714
  Receipt Date: 20040621
  Transmission Date: 20050211
  Serious: Yes (Hospitalization)
  Sender: FDA-Public Use
  Company Number: AT-BRISTOL-MYERS SQUIBB COMPANY-12620167

PATIENT
  Age: 60 Year
  Sex: Male

DRUGS (2)
  1. CETUXIMAB [Suspect]
     Indication: COLORECTAL CANCER METASTATIC
     Dosage: THERAPY INITIATED 20-APR-2004. PT RECEIVED 2 DOSES.OFF STUDY 14-JUN-2004
     Route: 042
     Dates: start: 20040527, end: 20040527
  2. IRINOTECAN [Suspect]
     Indication: COLORECTAL CANCER METASTATIC
     Dosage: THERAPY INITIATED 20-APR-2004-PT RECEIVED 2 DOSES.
     Route: 042
     Dates: start: 20040511, end: 20040511

REACTIONS (2)
  - ACNE PUSTULAR [None]
  - PYODERMA [None]
